FAERS Safety Report 21069273 (Version 4)
Quarter: 2024Q3

REPORT INFORMATION
  Report Type: Spontaneous
  Country: US (occurrence: US)
  Receive Date: 20220712
  Receipt Date: 20240722
  Transmission Date: 20241016
  Serious: No
  Sender: ASTELLAS
  Company Number: US-ASTPRD-AER-2022-006581

PATIENT
  Age: 94 Year
  Sex: Female

DRUGS (3)
  1. MYRBETRIQ [Suspect]
     Active Substance: MIRABEGRON
     Indication: Product used for unknown indication
     Dosage: 25 MG, ONCE DAILY (FOR 10DAYS)
     Route: 065
     Dates: start: 202204, end: 202205
  2. MYRBETRIQ [Suspect]
     Active Substance: MIRABEGRON
     Dosage: 50 MG, ONCE DAILY (FOR ABOUT 20 DAYS)
     Route: 065
     Dates: start: 202205, end: 202205
  3. MYRBETRIQ [Suspect]
     Active Substance: MIRABEGRON
     Indication: Product used for unknown indication
     Route: 065
     Dates: start: 202205

REACTIONS (3)
  - Cystocele [Not Recovered/Not Resolved]
  - Micturition urgency [Unknown]
  - Urinary incontinence [Unknown]
